FAERS Safety Report 8180892-3 (Version None)
Quarter: 2012Q1

REPORT INFORMATION
  Report Type: 
  Country: None (occurrence: None)
  Receive Date: 20120302
  Receipt Date: 20120217
  Transmission Date: 20120608
  Serious: Yes (Hospitalization)
  Sender: FDA-Public Use
  Company Number: CA-WATSON-2012-03404

PATIENT
  Age: 59 Year
  Sex: Male

DRUGS (1)
  1. BACLOFEN [Suspect]
     Indication: OVERDOSE

REACTIONS (4)
  - COMA [None]
  - OVERDOSE [None]
  - HYPOTENSION [None]
  - CONFUSIONAL STATE [None]
